FAERS Safety Report 11321070 (Version 1)
Quarter: 2015Q3

REPORT INFORMATION
  Report Type: Spontaneous
  Country: US (occurrence: US)
  Receive Date: 20150729
  Receipt Date: 20150729
  Transmission Date: 20151125
  Serious: Yes (Other)
  Sender: FDA-Public Use
  Company Number: US-TEVA-581570USA

PATIENT
  Age: 41 Year
  Sex: Female

DRUGS (2)
  1. ACETAZOLAMIDE. [Suspect]
     Active Substance: ACETAZOLAMIDE
     Indication: INTRACRANIAL PRESSURE INCREASED
     Dosage: 3000 MILLIGRAM DAILY;
  2. ACETAZOLAMIDE. [Suspect]
     Active Substance: ACETAZOLAMIDE
     Indication: INTRACRANIAL PRESSURE INCREASED

REACTIONS (6)
  - Intentional product use issue [Unknown]
  - Headache [Unknown]
  - Intracranial pressure increased [Unknown]
  - Blood pressure increased [Unknown]
  - Malaise [Unknown]
  - Off label use [Unknown]
